FAERS Safety Report 9190223 (Version 2)
Quarter: 2013Q2

REPORT INFORMATION
  Report Type: Spontaneous
  Country: IE (occurrence: IE)
  Receive Date: 20130326
  Receipt Date: 20130423
  Transmission Date: 20140414
  Serious: Yes (Hospitalization, Other)
  Sender: FDA-Public Use
  Company Number: IE-JNJFOC-20110800532

PATIENT
  Age: 63 Year
  Sex: Female
  Weight: 127 kg

DRUGS (9)
  1. XARELTO [Suspect]
     Indication: KNEE ARTHROPLASTY
     Route: 048
  2. XARELTO [Suspect]
     Indication: KNEE ARTHROPLASTY
     Route: 048
     Dates: start: 20100303, end: 20100306
  3. XARELTO [Suspect]
     Indication: THROMBOSIS PROPHYLAXIS
     Route: 048
  4. XARELTO [Suspect]
     Indication: THROMBOSIS PROPHYLAXIS
     Route: 048
     Dates: start: 20100303, end: 20100306
  5. EFEXOR DEPOT [Suspect]
     Indication: DEPRESSION
     Route: 048
     Dates: start: 20080101, end: 20100801
  6. LANSOPRAZOLE [Concomitant]
     Dates: start: 20100303, end: 20100306
  7. VENLAFAXINE [Concomitant]
     Indication: DEPRESSION
     Dates: start: 20100101, end: 20100801
  8. TRAMADOL [Concomitant]
     Dates: start: 20100303, end: 20100306
  9. PARACETAMOL [Concomitant]
     Dates: start: 20100303, end: 20100306

REACTIONS (8)
  - Haematoma [Recovered/Resolved]
  - Haematoma infection [Not Recovered/Not Resolved]
  - Infection [Recovered/Resolved]
  - Medication error [Recovered/Resolved]
  - Oedema peripheral [Recovered/Resolved]
  - Pain [Recovered/Resolved]
  - Pain [Recovered/Resolved]
  - Local swelling [Recovered/Resolved]
